FAERS Safety Report 18592458 (Version 2)
Quarter: 2021Q1

REPORT INFORMATION
  Report Type: Spontaneous
  Country: US (occurrence: US)
  Receive Date: 20201208
  Receipt Date: 20210129
  Transmission Date: 20210419
  Serious: Yes (Hospitalization)
  Sender: FDA-Public Use
  Company Number: US-ASTRAZENECA-2020SF60711

PATIENT
  Age: 25519 Day
  Sex: Female
  Weight: 117.9 kg

DRUGS (4)
  1. SYMBICORT [Suspect]
     Active Substance: BUDESONIDE\FORMOTEROL FUMARATE DIHYDRATE
     Indication: ASTHMA
     Dosage: 160/4.5 MCG, TWO PUFFS TWICE A DAY, IN THE MORNING AND AT NIGHT
     Route: 055
  2. SYMBICORT [Suspect]
     Active Substance: BUDESONIDE\FORMOTEROL FUMARATE DIHYDRATE
     Indication: ASTHMA
     Dosage: 160/4.5 MCG, TWO PUFFS TWICE A DAY, IN THE MORNING AND AT NIGHT
     Route: 055
     Dates: start: 20201105
  3. OXYGEN. [Concomitant]
     Active Substance: OXYGEN
  4. ORENCIA [Concomitant]
     Active Substance: ABATACEPT
     Indication: ARTHRITIS

REACTIONS (4)
  - Device related infection [Unknown]
  - Dyspnoea [Unknown]
  - Device malfunction [Unknown]
  - Wheezing [Unknown]

NARRATIVE: CASE EVENT DATE: 20201130
